FAERS Safety Report 7749365-3 (Version None)
Quarter: 2011Q3

REPORT INFORMATION
  Report Type: 
  Country: None (occurrence: None)
  Receive Date: 20110914
  Receipt Date: 20110906
  Transmission Date: 20111222
  Serious: Yes (Hospitalization)
  Sender: FDA-Public Use
  Company Number: DE-ABBOTT-11P-062-0852039-00

PATIENT
  Age: 39 Year
  Sex: Female
  Weight: 102 kg

DRUGS (3)
  1. ZEMPLAR [Suspect]
     Indication: HYPERPARATHYROIDISM SECONDARY
     Route: 042
     Dates: start: 20100830
  2. METAMIZOL [Suspect]
     Dates: start: 20090101
  3. METAMIZOL [Suspect]
     Indication: PRODUCT USED FOR UNKNOWN INDICATION
     Dates: start: 20100901, end: 20100901

REACTIONS (2)
  - LEUKOPENIA [None]
  - AGRANULOCYTOSIS [None]
